FAERS Safety Report 10528156 (Version 3)
Quarter: 2015Q1

REPORT INFORMATION
  Report Type: Other
  Country: IT (occurrence: IT)
  Receive Date: 20141020
  Receipt Date: 20150128
  Transmission Date: 20150720
  Serious: Yes (Hospitalization, Other)
  Sender: FDA-Public Use
  Company Number: IT-MYLANLABS-2014M1007532

PATIENT

DRUGS (5)
  1. PAROXETINE [Suspect]
     Active Substance: PAROXETINE\PAROXETINE HYDROCHLORIDE
     Dosage: 20 DF TOTAL
     Route: 048
     Dates: start: 20140811, end: 20140811
  2. PANTOPRAZOLE [Suspect]
     Active Substance: PANTOPRAZOLE SODIUM
     Indication: PRODUCT USED FOR UNKNOWN INDICATION
     Dosage: 13 DF TOTAL
     Route: 048
     Dates: start: 20140811, end: 20140811
  3. DIAZEPAM. [Suspect]
     Active Substance: DIAZEPAM
     Indication: DEPRESSION
     Dosage: UNK
     Route: 048
     Dates: start: 2014, end: 20140810
  4. PAROXETINE [Suspect]
     Active Substance: PAROXETINE\PAROXETINE HYDROCHLORIDE
     Indication: DEPRESSION
     Dosage: UNK
     Route: 048
     Dates: start: 2014, end: 20140810
  5. DIAZEPAM. [Suspect]
     Active Substance: DIAZEPAM
     Dosage: 20 ML, TOTAL
     Route: 048
     Dates: start: 20140811, end: 20140811

REACTIONS (7)
  - Hypotension [Recovered/Resolved]
  - Bradyphrenia [Recovered/Resolved]
  - Drug abuse [Recovered/Resolved]
  - Bradykinesia [Recovered/Resolved]
  - Overdose [Recovered/Resolved]
  - Intentional self-injury [Recovered/Resolved]
  - Somnolence [Recovered/Resolved]

NARRATIVE: CASE EVENT DATE: 20140811
